FAERS Safety Report 4498301-4 (Version None)
Quarter: 2004Q4

REPORT INFORMATION
  Report Type: 
  Country: None (occurrence: None)
  Receive Date: 20041109
  Receipt Date: 20041109
  Transmission Date: 20050328
  Serious: Yes (Hospitalization)
  Sender: FDA-Public Use
  Company Number: None

PATIENT
  Age: 51 Year
  Sex: Male
  Weight: 77.1115 kg

DRUGS (8)
  1. PHENYTOIN [Suspect]
     Indication: CONVULSION
     Dosage: 500MG   AT BEDTIME  ORAL
     Route: 048
     Dates: start: 20030910, end: 20041108
  2. TYLENOL W/ CODEINE NO. 3 [Concomitant]
  3. BACLOFEN [Concomitant]
  4. NAPROXEN [Concomitant]
  5. TRAZODONE HCL [Concomitant]
  6. OMEPRAZOLE [Concomitant]
  7. PRIMIDONE [Concomitant]
  8. LORAZEPAM [Concomitant]

REACTIONS (9)
  - ALCOHOLISM [None]
  - ATAXIA [None]
  - CONVULSION [None]
  - DIARRHOEA [None]
  - DRUG LEVEL INCREASED [None]
  - NAUSEA [None]
  - NYSTAGMUS [None]
  - POLYSUBSTANCE ABUSE [None]
  - REFUSAL OF TREATMENT BY PATIENT [None]
